FAERS Safety Report 23978465 (Version 1)
Quarter: 2024Q2

REPORT INFORMATION
  Report Type: Spontaneous
  Country: US (occurrence: None)
  Receive Date: 20240614
  Receipt Date: 20240614
  Transmission Date: 20240716
  Serious: Yes (Hospitalization, Other)
  Sender: FDA-Public Use
  Company Number: 2024A135199

PATIENT
  Age: 54 Year
  Sex: Male
  Weight: 154.4 kg

DRUGS (16)
  1. OMEPRAZOLE [Suspect]
     Active Substance: DONEPEZIL HYDROCHLORIDE\OMEPRAZOLE\OMEPRAZOLE MAGNESIUM
     Route: 048
  2. CARBOPLATIN [Suspect]
     Active Substance: CARBOPLATIN
     Indication: Adenocarcinoma
     Dosage: 3 MG/ML/MIN,
     Route: 042
     Dates: start: 20230215, end: 20230511
  3. CABAZITAXEL [Suspect]
     Active Substance: CABAZITAXEL
  4. ALBUTERO [Concomitant]
  5. DOFETILIDE [Concomitant]
     Active Substance: DOFETILIDE
  6. METOPROLOL SUCCINATE [Concomitant]
     Active Substance: METOPROLOL SUCCINATE
  7. HYDRALAZINE [Concomitant]
     Active Substance: HYDRALAZINE HYDROCHLORIDE
  8. ATORVASTATIN [Concomitant]
     Active Substance: ATORVASTATIN
  9. FUROSEMIDE [Concomitant]
     Active Substance: FUROSEMIDE
  10. ROPINIROLE [Concomitant]
     Active Substance: ROPINIROLE
  11. FENTANYL [Concomitant]
     Active Substance: FENTANYL\FENTANYL CITRATE
  12. OXYCODONE [Concomitant]
     Active Substance: OXYCODONE\OXYCODONE HYDROCHLORIDE
  13. TYLENOL [Concomitant]
     Active Substance: ACETAMINOPHEN
  14. OXYBUTYNIN [Concomitant]
     Active Substance: OXYBUTYNIN\OXYBUTYNIN CHLORIDE
  15. NARCAN [Concomitant]
     Active Substance: NALOXONE HYDROCHLORIDE
  16. OMEPRAZOLE [Concomitant]
     Active Substance: DONEPEZIL HYDROCHLORIDE\OMEPRAZOLE\OMEPRAZOLE MAGNESIUM

REACTIONS (7)
  - Malignant neoplasm progression [Unknown]
  - Anaemia [Recovered/Resolved]
  - Decreased appetite [Unknown]
  - Blood bilirubin increased [Unknown]
  - Urinary tract infection [Unknown]
  - Haemoglobin increased [Unknown]
  - Hypocalcaemia [Unknown]

NARRATIVE: CASE EVENT DATE: 20240306
